FAERS Safety Report 24243663 (Version 1)
Quarter: 2024Q3

REPORT INFORMATION
  Report Type: Spontaneous
  Country: CN (occurrence: CN)
  Receive Date: 20240823
  Receipt Date: 20240823
  Transmission Date: 20241016
  Serious: Yes (Hospitalization)
  Sender: SEBELA
  Company Number: CN-SEBELA IRELAND LIMITED-2024SEB00057

PATIENT
  Age: 41 Year
  Sex: Female
  Weight: 83 kg

DRUGS (8)
  1. ATROPINE [Suspect]
     Active Substance: ATROPINE
     Indication: Bradycardia
     Dosage: 0.5 MG
     Route: 042
  2. MIDAZOLAM [Concomitant]
     Active Substance: MIDAZOLAM
     Indication: Anaesthesia
     Dosage: 2 MG
  3. SUFENTANIL [Concomitant]
     Active Substance: SUFENTANIL
     Indication: Anaesthesia
     Dosage: 25 ?G
  4. CISATRACURIUM [Concomitant]
     Active Substance: CISATRACURIUM
     Indication: Anaesthesia
     Dosage: 16 MG
  5. ETOMIDATE [Concomitant]
     Active Substance: ETOMIDATE
     Indication: Anaesthesia
     Dosage: 16 MG
  6. REMIFENTANIL [Concomitant]
     Active Substance: REMIFENTANIL
     Indication: Anaesthesia
     Dosage: 0.05-0.15 ?G/KG/MINUTES
  7. PROPOFOL [Concomitant]
     Active Substance: PROPOFOL
     Indication: Anaesthesia
     Dosage: 2-4MG/KG/HOURS
  8. SEVOFLURANE [Concomitant]
     Active Substance: SEVOFLURANE
     Indication: Anaesthesia

REACTIONS (2)
  - Ventricular extrasystoles [Recovered/Resolved]
  - Cardiac failure acute [Recovered/Resolved]
